FAERS Safety Report 6396085-6 (Version None)
Quarter: 2009Q4

REPORT INFORMATION
  Report Type: 
  Country: None (occurrence: None)
  Receive Date: 20091009
  Receipt Date: 20091001
  Transmission Date: 20100525
  Serious: Yes (Other)
  Sender: FDA-Public Use
  Company Number: BR-ABBOTT-09P-020-0600368-00

PATIENT
  Sex: Female
  Weight: 77 kg

DRUGS (7)
  1. HUMIRA [Suspect]
     Indication: RHEUMATOID ARTHRITIS
     Route: 058
     Dates: end: 20090301
  2. HUMIRA [Suspect]
     Route: 058
     Dates: start: 20090801
  3. HUMIRA [Suspect]
     Route: 058
  4. EXFORGE [Concomitant]
     Indication: HYPERTENSION
     Route: 048
     Dates: start: 20080601
  5. METFORMIN HCL [Concomitant]
     Indication: DIABETES MELLITUS
     Route: 048
     Dates: start: 20060101
  6. SIMVASTATIN [Concomitant]
     Indication: BLOOD CHOLESTEROL INCREASED
     Route: 048
     Dates: start: 20040101
  7. AAS [Concomitant]
     Indication: HYPERTENSION
     Route: 048

REACTIONS (3)
  - CARPAL TUNNEL DECOMPRESSION [None]
  - INFLUENZA [None]
  - SINUSITIS [None]
